FAERS Safety Report 17756457 (Version 1)
Quarter: 2020Q2

REPORT INFORMATION
  Report Type: Spontaneous
  Country: FR (occurrence: FR)
  Receive Date: 20200507
  Receipt Date: 20200507
  Transmission Date: 20200714
  Serious: Yes (Hospitalization)
  Sender: FDA-Public Use
  Company Number: FR-CADILA HEALTHCARE LIMITED-FR-ZYDUS-022762

PATIENT

DRUGS (4)
  1. ALPRAZOLAM. [Suspect]
     Active Substance: ALPRAZOLAM
     Indication: INTENTIONAL OVERDOSE
     Dosage: 15 DOSAGE FORM
     Route: 048
     Dates: start: 20180124, end: 20180124
  2. ESCITALOPRAM [Suspect]
     Active Substance: ESCITALOPRAM OXALATE
     Indication: INTENTIONAL OVERDOSE
     Dosage: 27 DOSAGE FORM
     Route: 048
     Dates: start: 20180124, end: 20180124
  3. CODEINE [Suspect]
     Active Substance: CODEINE
     Indication: INTENTIONAL OVERDOSE
     Dosage: 6 DOSAGE FORM
     Route: 048
     Dates: start: 20180124, end: 20180124
  4. PARACETAMOL [Suspect]
     Active Substance: ACETAMINOPHEN
     Indication: INTENTIONAL OVERDOSE
     Dosage: 40 GRAM
     Route: 048
     Dates: start: 20180124, end: 20180124

REACTIONS (3)
  - Disturbance in attention [Recovered/Resolved]
  - Depressed level of consciousness [Recovered/Resolved]
  - Poisoning deliberate [Recovered/Resolved]

NARRATIVE: CASE EVENT DATE: 20180124
